FAERS Safety Report 9364561 (Version 2)
Quarter: 2013Q3

REPORT INFORMATION
  Report Type: Spontaneous
  Country: US (occurrence: US)
  Receive Date: 20130624
  Receipt Date: 20130806
  Transmission Date: 20140515
  Serious: Yes (Other)
  Sender: FDA-Public Use
  Company Number: PHEH2013US013256

PATIENT
  Sex: 0

DRUGS (2)
  1. VIVELLE DOT [Suspect]
     Dosage: 0.05 MG, UNK
     Route: 062
  2. VICODIN [Concomitant]
     Indication: FIBROMYALGIA
     Dosage: UNK UKN, UNK

REACTIONS (3)
  - Shock [Unknown]
  - Feeling abnormal [Unknown]
  - Hot flush [Unknown]
